FAERS Safety Report 6430754-4 (Version None)
Quarter: 2009Q4

REPORT INFORMATION
  Report Type: 
  Country: None (occurrence: None)
  Receive Date: 20091105
  Receipt Date: 20091105
  Transmission Date: 20100525
  Serious: Yes (Hospitalization)
  Sender: FDA-Public Use
  Company Number: None

PATIENT
  Age: 65 Year
  Sex: Male
  Weight: 93.4 kg

DRUGS (1)
  1. ANAKINRA [Suspect]
     Indication: GOUT
     Dosage: 2 DOSES
     Dates: start: 20091013, end: 20091015

REACTIONS (3)
  - GASTROINTESTINAL NECROSIS [None]
  - SEPSIS [None]
  - UPPER GASTROINTESTINAL HAEMORRHAGE [None]
